FAERS Safety Report 6180279-9 (Version None)
Quarter: 2009Q2

REPORT INFORMATION
  Report Type: 
  Country: None (occurrence: None)
  Receive Date: 20090501
  Receipt Date: 20090421
  Transmission Date: 20091009
  Serious: Yes (Other)
  Sender: FDA-Public Use
  Company Number: 2009-01572

PATIENT

DRUGS (1)
  1. VELCADE [Suspect]
     Indication: AMYLOIDOSIS

REACTIONS (4)
  - AMYLOIDOSIS [None]
  - DISEASE PROGRESSION [None]
  - HYPOPROTEINAEMIA [None]
  - PROTEINURIA [None]
